FAERS Safety Report 5199635-0 (Version None)
Quarter: 2007Q1

REPORT INFORMATION
  Report Type: 
  Country: None (occurrence: None)
  Receive Date: 20070103
  Receipt Date: 20070103
  Transmission Date: 20070707
  Serious: Yes (Other)
  Sender: FDA-Public Use
  Company Number: None

PATIENT
  Age: 32 Year
  Sex: Female
  Weight: 67.1324 kg

DRUGS (2)
  1. CARBOPLATIN [Suspect]
     Indication: BREAST CANCER
     Dosage: 321 MG  EVERY 3 WEEKS  IV
     Route: 042
     Dates: start: 20061107, end: 20061231
  2. CARBOPLATIN [Suspect]
     Indication: BREAST CANCER
     Dosage: 321 MG  EVERY 3 WEEKS  IV
     Route: 042
     Dates: start: 20070101

REACTIONS (4)
  - ERYTHEMA [None]
  - FLUSHING [None]
  - INFUSION RELATED REACTION [None]
  - VOMITING [None]
